FAERS Safety Report 5780075-8 (Version None)
Quarter: 2008Q2

REPORT INFORMATION
  Report Type: 
  Country: None (occurrence: None)
  Receive Date: 20080620
  Receipt Date: 20080613
  Transmission Date: 20081010
  Serious: Yes (Hospitalization)
  Sender: FDA-Public Use
  Company Number: US-BAYER-200820885NA

PATIENT
  Age: 66 Year
  Sex: Male
  Weight: 104 kg

DRUGS (14)
  1. SORAFENIB [Suspect]
     Indication: PANCREATIC CARCINOMA
     Dosage: TOTAL DAILY DOSE: 800 MG  UNIT DOSE: 200 MG
     Route: 048
     Dates: start: 20080415
  2. SORAFENIB [Suspect]
     Route: 048
     Dates: start: 20080422
  3. GEMCITABINE [Suspect]
     Indication: PANCREATIC CARCINOMA
     Route: 042
     Dates: start: 20080415
  4. METOPROLOL SUCCINATE [Concomitant]
     Indication: HYPERTENSION
     Dosage: TOTAL DAILY DOSE: 50 MG
  5. KLOR-CON [Concomitant]
     Indication: MINERAL SUPPLEMENTATION
     Dosage: TOTAL DAILY DOSE: 40 MEQ
  6. ZOLPIDEM [Concomitant]
     Indication: INSOMNIA
  7. LUNESTA [Concomitant]
     Indication: INSOMNIA
  8. DOCUSATE (COLACE) [Concomitant]
     Indication: CONSTIPATION
     Dosage: TOTAL DAILY DOSE: 200 MG
  9. NEXIUM [Concomitant]
     Indication: GASTROOESOPHAGEAL REFLUX DISEASE
     Dosage: TOTAL DAILY DOSE: 40 MG
  10. SENNA [Concomitant]
     Indication: LAXATIVE SUPPORTIVE CARE
  11. DILTIAZEM HCL [Concomitant]
     Indication: CARDIAC DISORDER
     Dosage: TOTAL DAILY DOSE: 180 MG
  12. ASPIRIN [Concomitant]
     Indication: ANTICOAGULANT THERAPY
     Dosage: TOTAL DAILY DOSE: 325 MG
  13. FOLIC ACID [Concomitant]
     Indication: ROUTINE HEALTH MAINTENANCE
  14. HYDROCODONE BITARTRATE AND ACETAMINOPHEN [Concomitant]
     Indication: PAIN

REACTIONS (5)
  - ABDOMINAL PAIN [None]
  - DEHYDRATION [None]
  - LOBAR PNEUMONIA [None]
  - NAUSEA [None]
  - VOMITING [None]
